FAERS Safety Report 4390996-9 (Version None)
Quarter: 2004Q3

REPORT INFORMATION
  Report Type: 
  Country: None (occurrence: None)
  Receive Date: 20040701
  Receipt Date: 20040701
  Transmission Date: 20050211
  Serious: Yes (Hospitalization)
  Sender: FDA-Public Use
  Company Number: None

PATIENT
  Sex: Male
  Weight: 108.8633 kg

DRUGS (8)
  1. CASODEX [Suspect]
     Indication: PROSTATE CANCER
     Dosage: 50 MG QD, PO
     Route: 048
     Dates: start: 19970811, end: 20001102
  2. ZOLADEX [Suspect]
     Indication: PROSTATE CANCER
     Dosage: 7.5 MG Q 28 DAYS SQ
     Route: 058
     Dates: start: 19990811
  3. PLAVIX [Concomitant]
  4. IMDUR [Concomitant]
  5. ZOCOR [Concomitant]
  6. ASPIRIN [Concomitant]
  7. PRINZIDE [Concomitant]
  8. NITROGLYCERIN [Concomitant]

REACTIONS (2)
  - CORONARY ARTERY DISEASE [None]
  - MYOCARDIAL INFARCTION [None]
